FAERS Safety Report 11151634 (Version 1)
Quarter: 2015Q2

REPORT INFORMATION
  Report Type: Spontaneous
  Country: ES (occurrence: None)
  Receive Date: 20150528
  Receipt Date: 20150528
  Transmission Date: 20150821
  Serious: Yes (Hospitalization, Other)
  Sender: FDA-Public Use
  Company Number: 2015HINLIT0456

PATIENT
  Age: 31 Month
  Sex: Male

DRUGS (5)
  1. LEVOFLOXACIN. [Concomitant]
     Active Substance: LEVOFLOXACIN
  2. AMIKACIN (AMIKACIN) [Concomitant]
     Active Substance: AMIKACIN
  3. METRONIDAZOLE. [Concomitant]
     Active Substance: METRONIDAZOLE
  4. VANCOMYCIN + MEROPENEM [Concomitant]
  5. LINEZOLID (LINEZOLID) UNKNOWN [Suspect]
     Active Substance: LINEZOLID
     Indication: PERIOPERATIVE ANALGESIA

REACTIONS (3)
  - Pseudomonas aeruginosa meningitis [None]
  - Enterococcal infection [None]
  - Drug resistance [None]
